FAERS Safety Report 4745692-2 (Version None)
Quarter: 2005Q3

REPORT INFORMATION
  Report Type: 
  Country: None (occurrence: None)
  Receive Date: 20050810
  Receipt Date: 20050802
  Transmission Date: 20060218
  Serious: Yes (Hospitalization)
  Sender: FDA-Public Use
  Company Number: 2005110210

PATIENT
  Sex: Male

DRUGS (2)
  1. ZITHROMAX [Suspect]
     Indication: PYREXIA
     Dosage: 500 MG , ORAL
     Route: 048
     Dates: start: 20050713, end: 20050713
  2. OTHER ANALGESICS AND ANTIPYRETICS (OTHER ANALGESICS AND ANTIPYRETICS) [Concomitant]

REACTIONS (3)
  - EATING DISORDER [None]
  - ERYTHEMA [None]
  - STEVENS-JOHNSON SYNDROME [None]
